FAERS Safety Report 7369064-X (Version None)
Quarter: 2011Q1

REPORT INFORMATION
  Report Type: 
  Country: None (occurrence: None)
  Receive Date: 20110314
  Receipt Date: 20110307
  Transmission Date: 20110831
  Serious: Yes (Other)
  Sender: FDA-Public Use
  Company Number: 2011SP006177

PATIENT
  Age: 40 Year
  Sex: Female

DRUGS (2)
  1. FOLLISTIM [Suspect]
     Indication: PRODUCT USED FOR UNKNOWN INDICATION
     Dosage: 300 IU;
     Dates: start: 20110121
  2. MENOPUR [Suspect]
     Indication: INFERTILITY
     Dosage: 150 IU; QD; SC
     Route: 058
     Dates: start: 20110121, end: 20110128

REACTIONS (4)
  - OESOPHAGEAL PAIN [None]
  - SENSATION OF FOREIGN BODY [None]
  - WEIGHT DECREASED [None]
  - OESOPHAGEAL ULCER [None]
